FAERS Safety Report 4775546-7 (Version None)
Quarter: 2005Q3

REPORT INFORMATION
  Report Type: 
  Country: None (occurrence: None)
  Receive Date: 20050920
  Receipt Date: 20050909
  Transmission Date: 20060218
  Serious: Yes (Other)
  Sender: FDA-Public Use
  Company Number: 2005116591

PATIENT
  Sex: Female

DRUGS (2)
  1. PROVERA [Suspect]
     Indication: ILL-DEFINED DISORDER
  2. PREMARIN [Concomitant]

REACTIONS (1)
  - BREAST CANCER FEMALE [None]
